FAERS Safety Report 11831436 (Version 1)
Quarter: 2015Q4

REPORT INFORMATION
  Report Type: Spontaneous
  Country: US (occurrence: US)
  Receive Date: 20151214
  Receipt Date: 20151214
  Transmission Date: 20160305
  Serious: No
  Sender: FDA-Public Use
  Company Number: PHEH2015US026020

PATIENT
  Age: 7 Year
  Sex: Male

DRUGS (1)
  1. PROMACTA [Suspect]
     Active Substance: ELTROMBOPAG OLAMINE
     Indication: THROMBOCYTOPENIA
     Dosage: 12.5 MG, QD
     Route: 048
     Dates: start: 20151018

REACTIONS (4)
  - Appetite disorder [Unknown]
  - Anger [Unknown]
  - Blood glucose decreased [Unknown]
  - Mood swings [Unknown]
